FAERS Safety Report 17136802 (Version 3)
Quarter: 2020Q1

REPORT INFORMATION
  Report Type: Spontaneous
  Country: US (occurrence: US)
  Receive Date: 20191210
  Receipt Date: 20200302
  Transmission Date: 20200409
  Serious: Yes (Hospitalization)
  Sender: FDA-Public Use
  Company Number: US-ACTELION PHARMACEUTICALS LTD.-A-NJ2019-199057

PATIENT
  Age: 63 Year
  Sex: Male

DRUGS (2)
  1. REMODULIN [Concomitant]
     Active Substance: TREPROSTINIL
  2. OPSUMIT [Suspect]
     Active Substance: MACITENTAN
     Indication: PULMONARY ARTERIAL HYPERTENSION
     Dosage: 10 MG, QD
     Route: 048
     Dates: start: 20180406

REACTIONS (7)
  - Nasopharyngitis [Recovering/Resolving]
  - Pulmonary congestion [Recovering/Resolving]
  - Abdominal distension [Unknown]
  - Flatulence [Unknown]
  - Pneumonia [Recovering/Resolving]
  - Sinus congestion [Recovering/Resolving]
  - Cough [Recovering/Resolving]

NARRATIVE: CASE EVENT DATE: 20191127
